FAERS Safety Report 8863892 (Version 1)
Quarter: 2012Q4

REPORT INFORMATION
  Report Type: 
  Country: US (occurrence: US)
  Receive Date: 20121024
  Receipt Date: 20121024
  Transmission Date: 20130627
  Serious: No
  Sender: FDA-Public Use
  Company Number: US-AMGEN-USASP2011064645

PATIENT
  Age: 47 Year
  Sex: Female
  Weight: 95.24 kg

DRUGS (13)
  1. ENBREL [Suspect]
     Indication: PRODUCT USED FOR UNKNOWN INDICATION
     Dosage: 50 mg, qwk
  2. METHOTREXATE [Concomitant]
  3. LEVOTHYROXIN [Concomitant]
  4. NEXIUM                             /01479302/ [Concomitant]
     Dosage: 20 mg, UNK
  5. FOLIC ACID [Concomitant]
  6. CALCIUM [Concomitant]
     Dosage: 500 mg, UNK
  7. VITAMIN D /00107901/ [Concomitant]
  8. HYDROCODONE/APAP [Concomitant]
     Dosage: 300 mg, UNK
  9. MECLIZINE                          /00072801/ [Concomitant]
     Dosage: 12.5 mg, UNK
  10. FUROSEMIDE [Concomitant]
     Dosage: 20 mg, UNK
  11. DIPHENHYDRAM.HYD. W/PARACETA./PHENYLEPH. HYD. [Concomitant]
     Dosage: 25 mg, UNK
  12. DOCUSATE [Concomitant]
     Dosage: 100 mg, UNK
  13. CYCLOBENZAPRIN HCL [Concomitant]
     Dosage: 5 mg, UNK

REACTIONS (1)
  - Injection site pain [Unknown]
